FAERS Safety Report 11636732 (Version 1)
Quarter: 2015Q4

REPORT INFORMATION
  Report Type: Spontaneous
  Country: US (occurrence: US)
  Receive Date: 20151016
  Receipt Date: 20151016
  Transmission Date: 20160304
  Serious: Yes (Hospitalization, Other)
  Sender: FDA-Public Use
  Company Number: US-GLAXOSMITHKLINE-US2015144122

PATIENT
  Sex: Male

DRUGS (4)
  1. GLYBURIDE. [Concomitant]
     Active Substance: GLYBURIDE
     Dosage: UNK
  2. ADVAIR HFA [Suspect]
     Active Substance: FLUTICASONE PROPIONATE\SALMETEROL XINAFOATE
     Indication: EMPHYSEMA
     Dosage: 2 PUFF(S), QD
     Route: 055
     Dates: start: 2010
  3. GLUCOPHAGE [Concomitant]
     Active Substance: METFORMIN HYDROCHLORIDE
     Dosage: UNK
  4. CAPTOPRIL. [Concomitant]
     Active Substance: CAPTOPRIL
     Dosage: UNK

REACTIONS (4)
  - Atrioventricular block [Recovered/Resolved]
  - Myocardial infarction [Recovered/Resolved]
  - Diabetes mellitus [Not Recovered/Not Resolved]
  - Skin ulcer [Not Recovered/Not Resolved]

NARRATIVE: CASE EVENT DATE: 2013
